FAERS Safety Report 5097637-6 (Version None)
Quarter: 2006Q3

REPORT INFORMATION
  Report Type: 
  Country: None (occurrence: None)
  Receive Date: 20060901
  Receipt Date: 20060821
  Transmission Date: 20061208
  Serious: Yes (Hospitalization)
  Sender: FDA-Public Use
  Company Number: 2006AP000630

PATIENT
  Age: 82 Year
  Sex: Female

DRUGS (5)
  1. MINOXIDIL [Suspect]
     Indication: ALOPECIA
     Dosage: 1 ML; QD; TOP
     Route: 061
     Dates: end: 20051001
  2. MINOXIDIL [Suspect]
     Indication: ALOPECIA
     Dosage: 1 ML; QD; TOP
     Route: 061
     Dates: start: 20060301, end: 20060315
  3. BENICAR [Concomitant]
  4. SYNTHORID [Concomitant]
  5. AMBIEN [Concomitant]

REACTIONS (4)
  - BLOOD PRESSURE SYSTOLIC INCREASED [None]
  - DIZZINESS [None]
  - LOSS OF CONSCIOUSNESS [None]
  - SYNCOPE [None]
